FAERS Safety Report 11865968 (Version 1)
Quarter: 2015Q4

REPORT INFORMATION
  Report Type: Spontaneous
  Country: IL (occurrence: IL)
  Receive Date: 20151223
  Receipt Date: 20151223
  Transmission Date: 20160305
  Serious: Yes (Other)
  Sender: FDA-Public Use
  Company Number: IL-KADMON PHARMACEUTICALS, LLC-KAD201512-004582

PATIENT
  Age: 77 Year
  Sex: Female

DRUGS (7)
  1. VIEKIRAX [Suspect]
     Active Substance: OMBITASVIR\PARITAPREVIR\RITONAVIR
     Indication: HEPATITIS C
     Dosage: TABLET
     Route: 048
     Dates: start: 20150425, end: 20150520
  2. AVILAC [Concomitant]
  3. EXVIERA [Suspect]
     Active Substance: DASABUVIR
     Indication: HEPATITIS C
     Dosage: TABLET
     Route: 048
     Dates: start: 20150425, end: 20150510
  4. ALDACTONE [Concomitant]
     Active Substance: SPIRONOLACTONE
  5. FUSID [Concomitant]
     Active Substance: FUROSEMIDE
  6. DERALIN [Concomitant]
     Active Substance: PROPRANOLOL HYDROCHLORIDE
  7. RIBAVIRIN. [Suspect]
     Active Substance: RIBAVIRIN
     Indication: HEPATITIS C
     Route: 048
     Dates: start: 20150425

REACTIONS (7)
  - Hepatic cirrhosis [Unknown]
  - Ascites [Recovering/Resolving]
  - Fatigue [Recovering/Resolving]
  - Blood bilirubin increased [Recovering/Resolving]
  - Varices oesophageal [Recovered/Resolved]
  - Blood count abnormal [Recovering/Resolving]
  - Encephalopathy [Recovering/Resolving]

NARRATIVE: CASE EVENT DATE: 201504
